FAERS Safety Report 9539372 (Version 1)
Quarter: 2013Q3

REPORT INFORMATION
  Report Type: Spontaneous
  Country: US (occurrence: US)
  Receive Date: 20130920
  Receipt Date: 20130920
  Transmission Date: 20140515
  Serious: Yes (Disabling)
  Sender: FDA-Public Use
  Company Number: US-SANOFI-AVENTIS-2013SA091600

PATIENT
  Sex: Female
  Weight: 49.89 kg

DRUGS (4)
  1. PLAVIX [Suspect]
     Route: 065
  2. DIOVANE [Concomitant]
  3. VITAMINS NOS [Concomitant]
  4. SYNTHROID [Concomitant]

REACTIONS (4)
  - Renal disorder [Not Recovered/Not Resolved]
  - Weight decreased [Not Recovered/Not Resolved]
  - Aphagia [Not Recovered/Not Resolved]
  - Body height decreased [Unknown]
